FAERS Safety Report 6887850-7 (Version None)
Quarter: 2010Q3

REPORT INFORMATION
  Report Type: 
  Country: None (occurrence: None)
  Receive Date: 20100730
  Receipt Date: 20100720
  Transmission Date: 20110219
  Serious: Yes (Hospitalization)
  Sender: FDA-Public Use
  Company Number: US-JNJFOC-20100706735

PATIENT
  Sex: Female
  Weight: 67.13 kg

DRUGS (7)
  1. REMICADE [Suspect]
     Indication: CROHN'S DISEASE
     Route: 042
  2. ASACOL [Concomitant]
     Indication: CROHN'S DISEASE
  3. CANASA [Concomitant]
     Indication: CROHN'S DISEASE
     Route: 065
  4. ROWASA [Concomitant]
     Indication: CROHN'S DISEASE
     Route: 065
  5. HYDROCORTISONE [Concomitant]
     Indication: CROHN'S DISEASE
     Route: 054
  6. MULTI-VIT [Concomitant]
  7. DESITIN WITH ZINC OXIDE [Concomitant]

REACTIONS (4)
  - ANAEMIA [None]
  - DEHYDRATION [None]
  - NAUSEA [None]
  - VOMITING [None]
